FAERS Safety Report 4462401-5 (Version None)
Quarter: 2004Q3

REPORT INFORMATION
  Report Type: 
  Country: None (occurrence: None)
  Receive Date: 20040924
  Receipt Date: 20040913
  Transmission Date: 20050211
  Serious: Yes (Hospitalization)
  Sender: FDA-Public Use
  Company Number: A01200404339

PATIENT
  Age: 33 Year
  Sex: Male

DRUGS (9)
  1. ZOLPIDEM TARTRATE [Suspect]
  2. DEPAS (ETIZOLAM) [Suspect]
  3. RITALIN [Suspect]
  4. AKINETON [Concomitant]
  5. NIMETAZEPAM [Suspect]
  6. WINTERNIN (CHLORPROMAZINE HYDROCHLORIDE) [Suspect]
  7. TEGRETOL [Suspect]
  8. RISPERDAL [Concomitant]
  9. DIAZEPAM [Suspect]

REACTIONS (3)
  - BLOOD PH DECREASED [None]
  - PCO2 DECREASED [None]
  - PRIAPISM [None]
